FAERS Safety Report 18857976 (Version 2)
Quarter: 2022Q1

REPORT INFORMATION
  Report Type: Spontaneous
  Country: US (occurrence: US)
  Receive Date: 20210208
  Receipt Date: 20220214
  Transmission Date: 20220423
  Serious: No
  Sender: FDA-Public Use
  Company Number: US-AUROBINDO-AUR-APL-2020-062849

PATIENT
  Age: 67 Year
  Sex: Male

DRUGS (1)
  1. FAMOTIDINE [Suspect]
     Active Substance: FAMOTIDINE
     Indication: Product used for unknown indication
     Dosage: 1 DOSAGE FORM
     Route: 065
     Dates: start: 2020

REACTIONS (6)
  - Chest discomfort [Unknown]
  - Nightmare [Unknown]
  - Nausea [Unknown]
  - Feeling abnormal [Unknown]
  - Vertigo [Unknown]
  - Product substitution issue [Unknown]
